FAERS Safety Report 9659334 (Version 1)
Quarter: 2013Q4

REPORT INFORMATION
  Report Type: Spontaneous
  Country: GB (occurrence: GB)
  Receive Date: 20131031
  Receipt Date: 20131031
  Transmission Date: 20140711
  Serious: Yes (Other)
  Sender: FDA-Public Use
  Company Number: GB-JNJFOC-20131015426

PATIENT
  Age: 43 Year
  Sex: Male
  Weight: 82.55 kg

DRUGS (4)
  1. DARUNAVIR [Suspect]
     Indication: HIV INFECTION
     Route: 065
     Dates: start: 20130821
  2. EDURANT [Suspect]
     Indication: HIV INFECTION
     Route: 065
     Dates: start: 20130821
  3. EMTRICITABINUM [Concomitant]
     Route: 065
  4. RITONAVIR [Concomitant]
     Route: 065

REACTIONS (1)
  - Cerebrovascular accident [Recovering/Resolving]
